FAERS Safety Report 21701668 (Version 2)
Quarter: 2022Q4

REPORT INFORMATION
  Report Type: Spontaneous
  Country: DE (occurrence: DE)
  Receive Date: 20221208
  Receipt Date: 20221219
  Transmission Date: 20230113
  Serious: Yes (Hospitalization, Other)
  Sender: FDA-Public Use
  Company Number: DE-TEVA-2022-DE-2833138

PATIENT
  Age: 62 Year
  Sex: Female

DRUGS (3)
  1. TRIMIPRAMINE [Suspect]
     Active Substance: TRIMIPRAMINE
     Indication: Dystonia
     Route: 065
  2. PAROXETINE [Suspect]
     Active Substance: PAROXETINE
     Indication: Dystonia
     Route: 065
  3. FLUSPIRILENE [Suspect]
     Active Substance: FLUSPIRILENE
     Indication: Psychotic disorder
     Route: 065

REACTIONS (6)
  - Dystonia [Recovering/Resolving]
  - Depression [Recovering/Resolving]
  - Cognitive disorder [Recovering/Resolving]
  - Affective disorder [Recovering/Resolving]
  - Quality of life decreased [Recovering/Resolving]
  - Therapy non-responder [Unknown]
